FAERS Safety Report 15679799 (Version 1)
Quarter: 2018Q4

REPORT INFORMATION
  Report Type: Spontaneous
  Country: JP (occurrence: JP)
  Receive Date: 20181203
  Receipt Date: 20181203
  Transmission Date: 20190205
  Serious: Yes (Hospitalization)
  Sender: FDA-Public Use
  Company Number: JP-TEVA-2018-JP-006405J

PATIENT
  Age: 45 Year
  Sex: Female

DRUGS (1)
  1. CETIRIZINE HYDROCHLORIDE TABLET 10MG ^TYK^ [Suspect]
     Active Substance: CETIRIZINE HYDROCHLORIDE
     Indication: PRODUCT USED FOR UNKNOWN INDICATION
     Dosage: UNKNOWN DOSE
     Route: 065
     Dates: start: 201411, end: 201412

REACTIONS (1)
  - Drug-induced liver injury [Unknown]
